FAERS Safety Report 4474854-7 (Version None)
Quarter: 2004Q3

REPORT INFORMATION
  Report Type: 
  Country: None (occurrence: None)
  Receive Date: 20040923
  Receipt Date: 20040727
  Transmission Date: 20050211
  Serious: No
  Sender: FDA-Public Use
  Company Number: USA040771808

PATIENT
  Age: 69 Year
  Sex: Male

DRUGS (6)
  1. FORTEO [Suspect]
     Indication: OSTEOPOROSIS
     Dates: start: 20040101
  2. NORVASC [Concomitant]
  3. CARDURAAR (DOXAZOSIN) [Concomitant]
  4. DIOVAN [Concomitant]
  5. COLCHICINE [Concomitant]
  6. PLAVIX [Concomitant]

REACTIONS (1)
  - BLOOD PHOSPHORUS INCREASED [None]
